FAERS Safety Report 9220779 (Version 1)
Quarter: 2013Q2

REPORT INFORMATION
  Report Type: Spontaneous
  Country: US (occurrence: US)
  Receive Date: 20130409
  Receipt Date: 20130409
  Transmission Date: 20140414
  Serious: No
  Sender: FDA-Public Use
  Company Number: US-UPSHER-SMITH LABORATORIES, INC.-12003286

PATIENT
  Sex: Female

DRUGS (7)
  1. CHOLESTYRAMINE [Suspect]
     Indication: BLOOD CHOLESTEROL INCREASED
     Dosage: 4 G, BID
     Route: 048
     Dates: start: 2010, end: 2010
  2. CHOLESTYRAMINE [Suspect]
     Indication: DIARRHOEA
  3. UNSPECIFIED BETA BLOCKER [Concomitant]
     Dosage: UNK
  4. FISH OIL [Concomitant]
     Dosage: UNK
  5. NIACIN [Concomitant]
     Dosage: UNK
  6. UNSPECIFIED THYROID MEDICATION [Concomitant]
     Dosage: UNK
  7. OMEPRAZOLE [Concomitant]
     Indication: GASTRITIS
     Dosage: UNK

REACTIONS (1)
  - Abdominal pain upper [Recovered/Resolved]
